FAERS Safety Report 5473731-2 (Version None)
Quarter: 2007Q3

REPORT INFORMATION
  Report Type: 
  Country: None (occurrence: None)
  Receive Date: 20070831
  Receipt Date: 20070618
  Transmission Date: 20080115
  Serious: No
  Sender: FDA-Public Use
  Company Number: 243133

PATIENT
  Age: 70 Year
  Sex: Female

DRUGS (5)
  1. LUCENTIS [Suspect]
     Indication: DRUG USE FOR UNKNOWN INDICATION
     Dosage: INTRAVITREAL
     Dates: start: 20070320
  2. ATENOLOL [Concomitant]
  3. CARDIZEM [Concomitant]
  4. UNKNOWN DRUG (GENERIC COMPONENT(S) NOT KNOWN) [Concomitant]
  5. NATURAL TEARS (ARTIFICIAL TEARS NOS) [Concomitant]

REACTIONS (3)
  - EYE PAIN [None]
  - NAUSEA [None]
  - RETINAL TEAR [None]
